FAERS Safety Report 10830600 (Version 1)
Quarter: 2015Q1

REPORT INFORMATION
  Report Type: Spontaneous
  Country: BE (occurrence: BE)
  Receive Date: 20150219
  Receipt Date: 20150219
  Transmission Date: 20150721
  Serious: Yes (Other)
  Sender: FDA-Public Use
  Company Number: BE-TEVA-541208ISR

PATIENT

DRUGS (2)
  1. LOPERAMIDE [Suspect]
     Active Substance: LOPERAMIDE
     Indication: HYPERTENSION
     Route: 065
  2. SUNITINIB [Interacting]
     Active Substance: SUNITINIB
     Indication: METASTATIC RENAL CELL CARCINOMA
     Route: 065

REACTIONS (4)
  - Hypertension [Unknown]
  - Drug interaction [Unknown]
  - Nausea [Unknown]
  - Electrocardiogram QT prolonged [Unknown]
